FAERS Safety Report 12511144 (Version 6)
Quarter: 2018Q2

REPORT INFORMATION
  Report Type: Spontaneous
  Country: GB (occurrence: GB)
  Receive Date: 20160629
  Receipt Date: 20180426
  Transmission Date: 20180711
  Serious: Yes (Life-Threatening, Other)
  Sender: FDA-Public Use
  Company Number: GB-PFIZER INC-2016317220

PATIENT
  Age: 20 Year
  Sex: Female

DRUGS (1)
  1. PROSTIN E2 [Suspect]
     Active Substance: DINOPROSTONE
     Indication: LABOUR INDUCTION
     Dosage: UNK
     Route: 067
     Dates: start: 20160330, end: 20160330

REACTIONS (18)
  - Vulvovaginal swelling [Not Recovered/Not Resolved]
  - Diabetes mellitus [Not Recovered/Not Resolved]
  - Condition aggravated [Not Recovered/Not Resolved]
  - Insomnia [Not Recovered/Not Resolved]
  - Mobility decreased [Not Recovered/Not Resolved]
  - Vaginal laceration [Not Recovered/Not Resolved]
  - Vaginal haemorrhage [Not Recovered/Not Resolved]
  - Anxiety [Not Recovered/Not Resolved]
  - Uterine disorder [Not Recovered/Not Resolved]
  - Genital hypoaesthesia [Not Recovered/Not Resolved]
  - Anaemia [Not Recovered/Not Resolved]
  - Gait inability [Not Recovered/Not Resolved]
  - Stress [Not Recovered/Not Resolved]
  - Feeling abnormal [Not Recovered/Not Resolved]
  - Vulvovaginal pain [Not Recovered/Not Resolved]
  - Depression [Not Recovered/Not Resolved]
  - Hypertension [Not Recovered/Not Resolved]
  - Abdominal pain [Not Recovered/Not Resolved]

NARRATIVE: CASE EVENT DATE: 2016
